FAERS Safety Report 6788355-4 (Version None)
Quarter: 2010Q2

REPORT INFORMATION
  Report Type: 
  Country: None (occurrence: None)
  Receive Date: 20100623
  Receipt Date: 20080411
  Transmission Date: 20101027
  Serious: No
  Sender: FDA-Public Use
  Company Number: US-PFIZER INC-2008016182

PATIENT

DRUGS (1)
  1. TRIAZOLAM [Suspect]
     Indication: SEDATION
     Route: 060

REACTIONS (2)
  - DRUG EFFECT DECREASED [None]
  - INCORRECT ROUTE OF DRUG ADMINISTRATION [None]
